FAERS Safety Report 9733074 (Version 1)
Quarter: 2013Q4

REPORT INFORMATION
  Report Type: Spontaneous
  Country: US (occurrence: None)
  Receive Date: 20131204
  Receipt Date: 20131204
  Transmission Date: 20140711
  Serious: No
  Sender: FDA-Public Use
  Company Number: None

PATIENT
  Age: 77 Year
  Sex: Female
  Weight: 51.71 kg

DRUGS (6)
  1. ATORVASTATIN [Suspect]
     Dosage: 1 TAB DAILY
  2. SIMVASTATIN [Suspect]
  3. MULTI VIT [Concomitant]
  4. CALCIUM W/D [Concomitant]
  5. VIT C WITH ROSE HIPS [Concomitant]
  6. ASPIRIN 81MG [Concomitant]

REACTIONS (7)
  - Muscle spasms [None]
  - Pain in extremity [None]
  - Musculoskeletal pain [None]
  - Insomnia [None]
  - Pain in extremity [None]
  - Pain in extremity [None]
  - Grip strength decreased [None]
